FAERS Safety Report 5397603-7 (Version None)
Quarter: 2007Q3

REPORT INFORMATION
  Report Type: 
  Country: None (occurrence: None)
  Receive Date: 20070723
  Receipt Date: 20070723
  Transmission Date: 20080115
  Serious: Yes (Hospitalization)
  Sender: FDA-Public Use
  Company Number: None

PATIENT
  Sex: Female
  Weight: 54.4316 kg

DRUGS (1)
  1. BACTRIM [Suspect]
     Indication: SKIN INFECTION
     Dosage: ORAL
     Route: 048
     Dates: start: 20061206, end: 20061214

REACTIONS (10)
  - DISEASE RECURRENCE [None]
  - DISORIENTATION [None]
  - ENCEPHALITIS VIRAL [None]
  - LETHARGY [None]
  - LOSS OF CONSCIOUSNESS [None]
  - PYREXIA [None]
  - RASH [None]
  - RETROGRADE AMNESIA [None]
  - SKIN INFECTION [None]
  - STATUS EPILEPTICUS [None]
